FAERS Safety Report 14998875 (Version 1)
Quarter: 2018Q2

REPORT INFORMATION
  Report Type: Spontaneous
  Country: GB (occurrence: GB)
  Receive Date: 20180612
  Receipt Date: 20180612
  Transmission Date: 20180711
  Serious: Yes (Other)
  Sender: FDA-Public Use
  Company Number: GB-TEVA-2018-GB-905160

PATIENT
  Age: 65 Year
  Sex: Male
  Weight: 95 kg

DRUGS (9)
  1. METFORMIN HYDROCHLORIDE. [Concomitant]
     Active Substance: METFORMIN HYDROCHLORIDE
     Route: 065
  2. ATORVASTATIN CALCIUM TRIHYDRATE [Suspect]
     Active Substance: ATORVASTATIN CALCIUM
     Indication: HYPERCHOLESTEROLAEMIA
     Route: 048
     Dates: start: 2010
  3. MONOMIL XL [Concomitant]
     Active Substance: ISOSORBIDE MONONITRATE
     Route: 065
  4. BRISTOL LABS LANSOPRAZOLE GASTRO-RESISTANT [Concomitant]
     Route: 065
  5. OLMESARTAN [Concomitant]
     Active Substance: OLMESARTAN
     Route: 065
  6. CLOPIDOGREL HYDROGEN SULFATE [Concomitant]
     Active Substance: CLOPIDOGREL BISULFATE
     Route: 065
  7. BISOPROLOL FUMARATE. [Concomitant]
     Active Substance: BISOPROLOL FUMARATE
     Route: 065
  8. AMLODIPINE [Concomitant]
     Active Substance: AMLODIPINE BESYLATE
     Route: 065
  9. HUMALOG MIX75/25 [Concomitant]
     Active Substance: INSULIN LISPRO
     Route: 065

REACTIONS (3)
  - Limb discomfort [Unknown]
  - Muscular weakness [Not Recovered/Not Resolved]
  - Muscle spasms [Not Recovered/Not Resolved]

NARRATIVE: CASE EVENT DATE: 201802
